FAERS Safety Report 5779403-9 (Version None)
Quarter: 2008Q2

REPORT INFORMATION
  Report Type: 
  Country: None (occurrence: None)
  Receive Date: 20080619
  Receipt Date: 20070313
  Transmission Date: 20081010
  Serious: No
  Sender: FDA-Public Use
  Company Number: US-ASTRAZENECA-2007UW04830

PATIENT
  Age: 66 Year
  Sex: Female
  Weight: 57.6 kg

DRUGS (5)
  1. ATACAND [Suspect]
     Indication: HYPERTENSION
     Route: 048
     Dates: start: 20070201
  2. XANAX [Concomitant]
  3. ZETIA [Concomitant]
  4. ATACAND [Concomitant]
  5. METFORMIN [Concomitant]

REACTIONS (1)
  - ALOPECIA [None]
